FAERS Safety Report 15615695 (Version 1)
Quarter: 2018Q4

REPORT INFORMATION
  Report Type: Spontaneous
  Country: CA (occurrence: CA)
  Receive Date: 20181114
  Receipt Date: 20181114
  Transmission Date: 20190205
  Serious: Yes (Other)
  Sender: FDA-Public Use
  Company Number: CA-009507513-1811CAN003645

PATIENT
  Age: 44 Year
  Sex: Male

DRUGS (1)
  1. KEYTRUDA [Suspect]
     Active Substance: PEMBROLIZUMAB
     Indication: METASTATIC MALIGNANT MELANOMA
     Dosage: UNK
     Route: 065
     Dates: start: 201707

REACTIONS (4)
  - Lymphocytic infiltration [Unknown]
  - Immune-mediated adverse reaction [Unknown]
  - Drug ineffective [Unknown]
  - Gastritis [Unknown]

NARRATIVE: CASE EVENT DATE: 201708
